FAERS Safety Report 6039292-4 (Version None)
Quarter: 2009Q1

REPORT INFORMATION
  Report Type: 
  Country: None (occurrence: None)
  Receive Date: 20090115
  Receipt Date: 20090113
  Transmission Date: 20090719
  Serious: Yes (Death)
  Sender: FDA-Public Use
  Company Number: US-B.I. PHARMACEUTICALS,INC./RIDGEFIELD-2009-BP-00431BP

PATIENT
  Sex: Female

DRUGS (18)
  1. SPIRIVA [Suspect]
     Indication: CHRONIC OBSTRUCTIVE PULMONARY DISEASE
     Dosage: 18MCG
     Route: 055
     Dates: start: 20050101, end: 20081216
  2. SPIRIVA [Suspect]
     Indication: EMPHYSEMA
  3. ALLEGRA [Concomitant]
     Dates: end: 20081216
  4. TESSILON PEARLS [Concomitant]
     Dates: end: 20081216
  5. LYRICA [Concomitant]
     Indication: SLEEP DISORDER
     Dates: end: 20081216
  6. IMDUR [Concomitant]
     Indication: CARDIAC FAILURE CONGESTIVE
     Dates: end: 20081216
  7. PROVENTIL [Concomitant]
     Indication: CHRONIC OBSTRUCTIVE PULMONARY DISEASE
     Dates: end: 20081216
  8. NORVASC [Concomitant]
     Indication: HYPERTENSION
     Dates: end: 20081216
  9. ACCURETIC [Concomitant]
     Dates: end: 20081216
  10. PAXIL [Concomitant]
     Indication: DEPRESSION
     Dates: end: 20081216
  11. ISOSORB MONO [Concomitant]
     Indication: ANGINA PECTORIS
     Dates: end: 20081216
  12. NEXIUM [Concomitant]
     Indication: GASTROOESOPHAGEAL REFLUX DISEASE
     Dates: end: 20081216
  13. PREMARIN [Concomitant]
     Dates: end: 20081216
  14. LIPITOR [Concomitant]
     Indication: BLOOD CHOLESTEROL INCREASED
     Dates: end: 20081216
  15. IMITREX [Concomitant]
     Indication: MIGRAINE
     Dates: end: 20081216
  16. ADVAIR DISKUS 100/50 [Concomitant]
     Indication: CHRONIC OBSTRUCTIVE PULMONARY DISEASE
     Dates: end: 20081216
  17. ATENOLOL [Concomitant]
     Indication: HYPERTENSION
     Dates: end: 20081216
  18. POTASSIUM CHLORIDE [Concomitant]
     Indication: HYPERTENSION
     Dates: end: 20081216

REACTIONS (1)
  - EMPHYSEMA [None]
